FAERS Safety Report 18312194 (Version 1)
Quarter: 2020Q3

REPORT INFORMATION
  Report Type: Spontaneous
  Country: GB (occurrence: GB)
  Receive Date: 20200925
  Receipt Date: 20200925
  Transmission Date: 20201103
  Serious: Yes (Other)
  Sender: FDA-Public Use
  Company Number: GB-PFIZER INC-2020368377

PATIENT
  Age: 69 Year
  Sex: Male
  Weight: 78 kg

DRUGS (16)
  1. SIRDUPLA [Concomitant]
     Active Substance: FLUTICASONE PROPIONATE\SALMETEROL XINAFOATE
     Dosage: UNK
  2. SPIRONOLACTONE. [Concomitant]
     Active Substance: SPIRONOLACTONE
     Dosage: UNK
  3. LEVOTHYROXINE. [Concomitant]
     Active Substance: LEVOTHYROXINE
     Dosage: UNK
  4. OCTREOTIDE. [Concomitant]
     Active Substance: OCTREOTIDE
     Dosage: UNK
  5. EZETIMIBE. [Concomitant]
     Active Substance: EZETIMIBE
     Dosage: UNK
  6. SOMAVERT [Suspect]
     Active Substance: PEGVISOMANT
     Indication: ACROMEGALY
     Dosage: 80MG LOADING DOSE FOLLOWED BY 10MG DAILY
     Route: 051
     Dates: start: 20200820, end: 20200824
  7. HYDROCORTISONE. [Concomitant]
     Active Substance: HYDROCORTISONE
     Dosage: UNK
  8. VENTOLIN [Concomitant]
     Active Substance: ALBUTEROL SULFATE
     Dosage: UNK
  9. CALCIUM AND VIT D [Concomitant]
     Active Substance: CALCIUM\VITAMIN D
  10. TESTOGEL [Concomitant]
     Active Substance: TESTOSTERONE
  11. PARACETAMOL [Concomitant]
     Active Substance: ACETAMINOPHEN
     Dosage: UNK
  12. TAMSULOSIN [Concomitant]
     Active Substance: TAMSULOSIN
     Dosage: UNK
  13. OMEPRAZOLE. [Concomitant]
     Active Substance: OMEPRAZOLE
     Dosage: UNK
  14. LERCANIDIPINE HYDROCHLORIDE [Concomitant]
     Active Substance: LERCANIDIPINE HYDROCHLORIDE
     Dosage: UNK
  15. RAMIPRIL. [Concomitant]
     Active Substance: RAMIPRIL
     Dosage: UNK
  16. ATORVASTATIN [Concomitant]
     Active Substance: ATORVASTATIN
     Dosage: UNK

REACTIONS (8)
  - Urinary retention [Recovering/Resolving]
  - Urethral stenosis [Unknown]
  - Adrenal insufficiency [Recovering/Resolving]
  - Trigeminal neuralgia [Recovering/Resolving]
  - Headache [Recovering/Resolving]
  - Cortisol decreased [Unknown]
  - Urinary retention [Unknown]
  - Condition aggravated [Recovering/Resolving]

NARRATIVE: CASE EVENT DATE: 20200820
